FAERS Safety Report 8776696 (Version 3)
Quarter: 2012Q4

REPORT INFORMATION
  Report Type: 
  Country: KR (occurrence: KR)
  Receive Date: 20120910
  Receipt Date: 20120920
  Transmission Date: 20130627
  Serious: Yes (Death, Hospitalization)
  Sender: FDA-Public Use
  Company Number: PHHY2012KR074175

PATIENT
  Age: 58 Year
  Sex: Female

DRUGS (1)
  1. SEBIVO [Suspect]
     Indication: HEPATITIS B
     Dosage: 600 mg, per day
     Route: 048
     Dates: start: 20100907, end: 20101011

REACTIONS (3)
  - Hepatocellular carcinoma [Fatal]
  - Condition aggravated [None]
  - Blood urea nitrogen/creatinine ratio increased [None]
